FAERS Safety Report 23411442 (Version 2)
Quarter: 2024Q1

REPORT INFORMATION
  Report Type: Report from Study
  Country: US (occurrence: US)
  Receive Date: 20240117
  Receipt Date: 20240202
  Transmission Date: 20240410
  Serious: Yes (Other)
  Sender: FDA-Public Use
  Company Number: US-MYLANLABS-2024M1005263

PATIENT
  Sex: Female
  Weight: 69.4 kg

DRUGS (2)
  1. GLATIRAMER ACETATE [Suspect]
     Active Substance: GLATIRAMER ACETATE
     Indication: Multiple sclerosis
     Dosage: 40 MILLIGRAM, 3XW
     Route: 065
  2. METAMUCIL [Concomitant]
     Active Substance: PLANTAGO SEED
     Dosage: ONCE AND SOMETIMES TWICE A DAY
     Route: 065

REACTIONS (11)
  - Mental impairment [Unknown]
  - Confusional state [Unknown]
  - Faeces pale [Unknown]
  - Injection site warmth [Unknown]
  - Bowel movement irregularity [Unknown]
  - Injection site discolouration [Unknown]
  - Injection site erythema [Unknown]
  - Injection site rash [Unknown]
  - Urticaria [Unknown]
  - Injection site pruritus [Unknown]
  - Back pain [Unknown]
